FAERS Safety Report 15923339 (Version 1)
Quarter: 2019Q1

REPORT INFORMATION
  Report Type: Spontaneous
  Country: GB (occurrence: GB)
  Receive Date: 20190206
  Receipt Date: 20190206
  Transmission Date: 20190417
  Serious: Yes (Congenital Anomaly)
  Sender: FDA-Public Use
  Company Number: GB-AUROBINDO-AUR-APL-2019-005749

PATIENT

DRUGS (1)
  1. NAPROXEN TABLETS 250 MG [Suspect]
     Active Substance: NAPROXEN
     Indication: HEADACHE
     Dosage: 1500 MILLIGRAM, ONCE A DAY
     Route: 064
     Dates: start: 20180626

REACTIONS (3)
  - Foetal exposure during pregnancy [Unknown]
  - Persistent left superior vena cava [Unknown]
  - Bone development abnormal [Unknown]

NARRATIVE: CASE EVENT DATE: 2018
